FAERS Safety Report 9511010 (Version 1)
Quarter: 2013Q1

REPORT INFORMATION
  Report Type: Spontaneous
  Country: US (occurrence: None)
  Receive Date: 20130305
  Receipt Date: 20130305
  Transmission Date: 20140127
  Serious: Yes (Hospitalization)
  Sender: FDA-Public Use
  Company Number: 163-21880-12021379

PATIENT
  Age: 72 Year
  Sex: Male
  Weight: 89.17 kg

DRUGS (43)
  1. REVLIMID [Suspect]
     Indication: PLASMA CELL MYELOMA
     Route: 048
     Dates: start: 201005
  2. MELPHALAN [Suspect]
     Indication: PLASMA CELL MYELOMA
     Dates: start: 20100423
  3. RASBURICASE(RASBURICASE) [Concomitant]
  4. AREDIA(PAMIDRONATE DISODIUM) [Concomitant]
  5. FOLIC ACID(FOLIC ACID) [Concomitant]
  6. CIPRO(CIPROFLOXACIN) [Concomitant]
  7. DIFLUCAN(FLUCONAZOLE) [Concomitant]
  8. ZOVIRAX(ACICLOVIR) [Concomitant]
  9. K-DUR(POTASSIUM CHLORIDE) [Concomitant]
  10. KEFLEX (CEFALEXIN MONOHYDRATE) [Concomitant]
  11. WARFARIN(WARFARIN) [Concomitant]
  12. VITAMIN C [Concomitant]
  13. NEURONTIN(GABAPENTIN) [Concomitant]
  14. SENOKOT-S(SENOKOT-S) [Concomitant]
  15. HALDOL(HALOPERIDOL) [Concomitant]
  16. PYRIDOXINE(PYRIDOXINE) [Concomitant]
  17. OXYCODONE(OXYCODONE) [Concomitant]
  18. POLYETHYLENE GLYCOL 3350 (MACROGOL 3350) [Concomitant]
  19. PREVACID (LANSOPRAZOLE) [Concomitant]
  20. SENNA(SENNA) [Concomitant]
  21. COLACE(DOCUSATE SODIUM) [Concomitant]
  22. ASPIRIN(ACETYLSALICYLIC ACID) [Concomitant]
  23. ALPHA-LIPOIC ACID(THIOCTIC ACID) [Concomitant]
  24. MAG-OX(MAGNESIUM OXIDE) [Concomitant]
  25. DELTAZONE(PREDNISONE) [Concomitant]
  26. LASIX (FUROSEMIDE) [Concomitant]
  27. PREPARATION H(PREPARATION H/ISR) [Concomitant]
  28. STOOL SOFTENER (DOCUSATE SODIUM) [Concomitant]
  29. TUCKS(TUCKS) [Concomitant]
  30. COUMADIN(WARFARIN SODIUM) [Concomitant]
  31. AVELOX(MOXIFLOXACIN HYDROCHLORIDE) [Concomitant]
  32. PAMIDRONATE(PAMIDRONATE DISODIUM) [Concomitant]
  33. VITMAIN B12(CYANOCOBALAMIN) [Concomitant]
  34. LEVAQUIN(LEVOFLOXACIN) [Concomitant]
  35. TOPROL XL (METOPROLOL SUCCINATE) [Concomitant]
  36. PLATELETS (PLATELETS) [Concomitant]
  37. MORPHINE IR(MORPHINE SULFATE) [Concomitant]
  38. COENZYME Q10(UBIDECARENONE) [Concomitant]
  39. VITAMINS [Concomitant]
  40. ATIVAN(LORAZEPAM) [Concomitant]
  41. COMPAZINE(PROCHLORPERAZINE EDISYLATE) [Concomitant]
  42. BENDAMUSTINE [Concomitant]
  43. LOPRESSOR(METOPROLOL TARTRATE) [Concomitant]

REACTIONS (3)
  - Tumour lysis syndrome [None]
  - Renal failure acute [None]
  - Urinary tract infection [None]
